FAERS Safety Report 19215428 (Version 1)
Quarter: 2021Q2

REPORT INFORMATION
  Report Type: Report from Study
  Country: ES (occurrence: ES)
  Receive Date: 20210504
  Receipt Date: 20210504
  Transmission Date: 20210717
  Serious: Yes (Hospitalization, Other)
  Sender: FDA-Public Use
  Company Number: ES-BRISTOL-MYERS SQUIBB COMPANY-BMS-2018-120573

PATIENT
  Age: 64 Year
  Sex: Female
  Weight: 57.3 kg

DRUGS (10)
  1. PARACETAMOL [Concomitant]
     Active Substance: ACETAMINOPHEN
     Route: 048
     Dates: start: 20181016
  2. PARACETAMOL [Concomitant]
     Active Substance: ACETAMINOPHEN
     Route: 048
     Dates: start: 20181016
  3. ERYTHROMYCIN. [Concomitant]
     Active Substance: ERYTHROMYCIN
     Indication: DERMATITIS ACNEIFORM
     Dosage: 1 APPLICATION QD
     Route: 061
     Dates: start: 20181105
  4. MST [MORPHINE SULFATE] [Concomitant]
     Active Substance: MORPHINE SULFATE
     Dosage: 20 MILLIGRAM, BID
     Route: 048
     Dates: start: 20181203
  5. MST [MORPHINE SULFATE] [Concomitant]
     Active Substance: MORPHINE SULFATE
     Indication: PAIN PROPHYLAXIS
     Dosage: 10 MILLIGRAM, BID
     Route: 048
     Dates: start: 20181031, end: 20181202
  6. NIVOLUMAB [Suspect]
     Active Substance: NIVOLUMAB
     Indication: COLORECTAL CANCER
     Dosage: 480 MG, QMO
     Route: 042
     Dates: start: 20181002, end: 20181203
  7. PARACETAMOL [Concomitant]
     Active Substance: ACETAMINOPHEN
     Indication: PELVIC PAIN
     Dosage: 1 GRAM, 3 PER DAY (EACH 8 HOURS)
     Route: 048
     Dates: start: 20181016
  8. DEXKETOPROFEN [Concomitant]
     Active Substance: DEXKETOPROFEN
     Indication: PELVIC PAIN
     Dosage: 25 MILLIGRAM, 3 PER DAY (EACH 8 HOURS)
     Route: 048
     Dates: start: 20181016
  9. EMULIQUEN LAXANTE [PARAFFIN;SODIUM PICOSULFATE] [Concomitant]
     Indication: CONSTIPATION
     Dosage: 2 SPOONS, BID
     Route: 048
     Dates: start: 20181016
  10. BINIMETINIB [Suspect]
     Active Substance: BINIMETINIB
     Indication: COLORECTAL CANCER
     Dosage: 45 MILLIGRAM, QD
     Route: 048
     Dates: start: 20181002, end: 20181203

REACTIONS (1)
  - Cardiac failure [Recovered/Resolved]

NARRATIVE: CASE EVENT DATE: 20181212
